FAERS Safety Report 6349337-X (Version None)
Quarter: 2009Q3

REPORT INFORMATION
  Report Type: 
  Country: None (occurrence: None)
  Receive Date: 20090911
  Receipt Date: 20090904
  Transmission Date: 20100115
  Serious: Yes (Other)
  Sender: FDA-Public Use
  Company Number: B0592826A

PATIENT
  Age: 58 Year
  Sex: Female

DRUGS (6)
  1. MOTIVAN [Suspect]
     Indication: DEPRESSION
     Dosage: 20MG PER DAY
     Route: 048
     Dates: start: 20090209
  2. COZAAR [Suspect]
     Indication: HYPERTENSION
     Dosage: 50MG PER DAY
     Route: 048
     Dates: start: 20090207
  3. INDAPAMIDE [Suspect]
     Indication: DRUG USE FOR UNKNOWN INDICATION
     Dosage: 2.5MG PER DAY
     Route: 048
     Dates: end: 20090207
  4. MIRAPEX [Suspect]
     Indication: RESTLESS LEGS SYNDROME
     Dosage: .18MG PER DAY
     Route: 048
     Dates: start: 20090210, end: 20090210
  5. TRANKIMAZIN RETARD [Suspect]
     Indication: ANXIETY
     Dosage: .5MG PER DAY
     Route: 048
     Dates: end: 20090207
  6. TRANXILIUM [Suspect]
     Indication: ANXIETY
     Dosage: 5MG PER DAY
     Route: 048

REACTIONS (2)
  - DRUG INTERACTION [None]
  - SUDDEN ONSET OF SLEEP [None]
